FAERS Safety Report 4674527-1 (Version None)
Quarter: 2005Q2

REPORT INFORMATION
  Report Type: 
  Country: None (occurrence: None)
  Receive Date: 20050526
  Receipt Date: 20050415
  Transmission Date: 20051028
  Serious: Yes (Other)
  Sender: FDA-Public Use
  Company Number: US-ROCHE-402085

PATIENT
  Age: 53 Year
  Sex: Female
  Weight: 60.5 kg

DRUGS (5)
  1. PEG-INTERFERON ALFA 2A (RO 25-8310) [Suspect]
     Route: 058
     Dates: start: 20041018
  2. RIBAVIRIN [Suspect]
     Dosage: DOSE FORM REPORTED AS PILL.
     Route: 048
     Dates: start: 20041018, end: 20050411
  3. RIBAVIRIN [Suspect]
     Route: 048
  4. TYLENOL (CAPLET) [Concomitant]
     Dates: start: 20020404
  5. FLEXERIL [Concomitant]
     Dates: start: 20040902

REACTIONS (8)
  - ANAEMIA [None]
  - ASTHENIA [None]
  - COUGH [None]
  - DEHYDRATION [None]
  - INFLUENZA [None]
  - INSOMNIA [None]
  - LOBAR PNEUMONIA [None]
  - PRODUCTIVE COUGH [None]
